FAERS Safety Report 8193431 (Version 2)
Quarter: 2013Q2

REPORT INFORMATION
  Report Type: Report from Study
  Country: US (occurrence: US)
  Receive Date: 20111021
  Receipt Date: 20130411
  Transmission Date: 20140414
  Serious: Yes (Hospitalization)
  Sender: FDA-Public Use
  Company Number: US-PFIZER INC-2011249746

PATIENT
  Age: 59 Year
  Sex: Female

DRUGS (6)
  1. MECLOZINE HCL [Suspect]
     Dosage: 25 MG, UNK
     Dates: start: 20110204
  2. LASIX [Suspect]
     Dosage: 25 MG
  3. METFORMIN HYDROCHLORIDE [Suspect]
     Indication: TYPE 2 DIABETES MELLITUS
     Dosage: 1000 MG, UNK
  4. BLINDED THERAPY [Suspect]
     Indication: TYPE 2 DIABETES MELLITUS
     Dosage: UNK
     Dates: start: 20100729
  5. GLIMEPIRIDE [Suspect]
     Indication: TYPE 2 DIABETES MELLITUS
     Dosage: 4 MG, UNK
  6. INSULIN DETEMIR [Suspect]
     Indication: TYPE 2 DIABETES MELLITUS
     Dosage: 16 IU, UNK
     Dates: end: 20101019

REACTIONS (1)
  - Orthostatic hypotension [Recovered/Resolved]
